FAERS Safety Report 21960206 (Version 3)
Quarter: 2023Q4

REPORT INFORMATION
  Report Type: Spontaneous
  Country: CA (occurrence: CA)
  Receive Date: 20230207
  Receipt Date: 20231017
  Transmission Date: 20240110
  Serious: No
  Sender: FDA-Public Use
  Company Number: CA-PFIZER INC-202300031158

PATIENT
  Age: 64 Year
  Sex: Female

DRUGS (2)
  1. RUXIENCE [Suspect]
     Active Substance: RITUXIMAB-PVVR
     Indication: Granulomatosis with polyangiitis
     Dosage: 1000 MG, ON DAY 1 AND DAY 15
     Route: 042
     Dates: start: 20230125, end: 20230208
  2. PREDNISONE [Suspect]
     Active Substance: PREDNISONE
     Dosage: 1 DF, UNKNOWN

REACTIONS (1)
  - Off label use [Unknown]
